FAERS Safety Report 9549358 (Version 1)
Quarter: 2013Q3

REPORT INFORMATION
  Report Type: Spontaneous
  Country: GB (occurrence: None)
  Receive Date: 20130919
  Receipt Date: 20130919
  Transmission Date: 20140515
  Serious: Yes (Other)
  Sender: FDA-Public Use
  Company Number: SYM-2013-10657

PATIENT
  Sex: Male

DRUGS (1)
  1. ZYCLARA [Suspect]
     Indication: PRODUCT USED FOR UNKNOWN INDICATION
     Dosage: TOPICAL
     Route: 061

REACTIONS (1)
  - Stevens-Johnson syndrome [None]
